FAERS Safety Report 25389158 (Version 1)
Quarter: 2025Q2

REPORT INFORMATION
  Report Type: Spontaneous
  Country: ES (occurrence: ES)
  Receive Date: 20250603
  Receipt Date: 20250603
  Transmission Date: 20250717
  Serious: Yes (Other)
  Sender: BOEHRINGER INGELHEIM
  Company Number: None

PATIENT
  Age: 75 Year
  Sex: Male

DRUGS (1)
  1. GLYXAMBI [Suspect]
     Active Substance: EMPAGLIFLOZIN\LINAGLIPTIN
     Indication: Type 2 diabetes mellitus
     Route: 048
     Dates: start: 20241008, end: 20250515

REACTIONS (4)
  - Weight decreased [Unknown]
  - Candida infection [Unknown]
  - Nocturia [Unknown]
  - Dysuria [Unknown]

NARRATIVE: CASE EVENT DATE: 20250101
